FAERS Safety Report 8121950-9 (Version None)
Quarter: 2012Q1

REPORT INFORMATION
  Report Type: 
  Country: None (occurrence: None)
  Receive Date: 20120208
  Receipt Date: 20120201
  Transmission Date: 20120608
  Serious: Yes (Hospitalization, Other)
  Sender: FDA-Public Use
  Company Number: DK-TEVA-319468ISR

PATIENT
  Sex: Female

DRUGS (2)
  1. METHOTREXATE [Suspect]
     Route: 058
     Dates: start: 20100611
  2. ENBREL [Suspect]
     Dosage: 50MG, WEEKLY
     Dates: start: 20110606

REACTIONS (1)
  - MENINGITIS HERPES [None]
